FAERS Safety Report 17036096 (Version 2)
Quarter: 2019Q4

REPORT INFORMATION
  Report Type: Spontaneous
  Country: US (occurrence: US)
  Receive Date: 20191115
  Receipt Date: 20191122
  Transmission Date: 20200122
  Serious: No
  Sender: FDA-Public Use
  Company Number: US-SHIRE-US201938686

PATIENT
  Age: 71 Year
  Sex: Female
  Weight: 63.04 kg

DRUGS (4)
  1. XIIDRA [Suspect]
     Active Substance: LIFITEGRAST
     Indication: DRY EYE
     Dosage: 2 GTT DROPS, 2X/DAY:BID
     Route: 047
     Dates: start: 20191104
  2. REFRESH [CARMELLOSE] [Concomitant]
     Indication: DRY EYE
  3. XIIDRA [Suspect]
     Active Substance: LIFITEGRAST
     Dosage: 2 GTT DROPS, 2X/DAY:BID
     Route: 047
     Dates: start: 20191106
  4. RESTASIS [Suspect]
     Active Substance: CYCLOSPORINE
     Indication: PRODUCT USED FOR UNKNOWN INDICATION
     Route: 065

REACTIONS (5)
  - Eye disorder [Not Recovered/Not Resolved]
  - Ocular discomfort [Not Recovered/Not Resolved]
  - Eye irritation [Not Recovered/Not Resolved]
  - Photophobia [Unknown]
  - Eye pain [Not Recovered/Not Resolved]

NARRATIVE: CASE EVENT DATE: 20191105
